FAERS Safety Report 12496988 (Version 2)
Quarter: 2016Q3

REPORT INFORMATION
  Report Type: Report from Study
  Country: JP (occurrence: JP)
  Receive Date: 20160624
  Receipt Date: 20160704
  Transmission Date: 20161109
  Serious: Yes (Other)
  Sender: FDA-Public Use
  Company Number: JP-PFIZER INC-2016307811

PATIENT

DRUGS (1)
  1. PREGABALIN. [Suspect]
     Active Substance: PREGABALIN
     Indication: PAIN
     Dosage: 75 MG, DAILY
     Route: 048
     Dates: end: 20160517

REACTIONS (3)
  - Glaucoma [Unknown]
  - Cataract [Unknown]
  - Intentional product misuse [Unknown]
